FAERS Safety Report 12430174 (Version 1)
Quarter: 2016Q2

REPORT INFORMATION
  Report Type: Spontaneous
  Country: US (occurrence: US)
  Receive Date: 20160602
  Receipt Date: 20160602
  Transmission Date: 20160815
  Serious: Yes (Hospitalization)
  Sender: FDA-Public Use
  Company Number: US-DSJP-DSU-2015-118054

PATIENT
  Age: 66 Year
  Sex: Female
  Weight: 53.52 kg

DRUGS (2)
  1. BENICAR [Suspect]
     Active Substance: OLMESARTAN MEDOXOMIL
     Indication: HYPERTENSION
     Dosage: 20 MG, QD
     Route: 048
     Dates: start: 201007
  2. BENICAR HCT [Suspect]
     Active Substance: HYDROCHLOROTHIAZIDE\OLMESARTAN MEDOXOMIL
     Indication: HYPERTENSION
     Dosage: 40-25MG ONCE DAILY
     Route: 048
     Dates: start: 200202, end: 200808

REACTIONS (13)
  - Coeliac disease [Unknown]
  - Gastric polyps [Unknown]
  - Duodenitis [Unknown]
  - Abdominal pain [Unknown]
  - Malabsorption [Unknown]
  - Large intestine polyp [Recovered/Resolved]
  - Colitis [Unknown]
  - Ascites [Unknown]
  - Gastritis [Unknown]
  - Intestinal dilatation [Unknown]
  - Acute kidney injury [Unknown]
  - Flatulence [Unknown]
  - Small intestinal obstruction [Unknown]

NARRATIVE: CASE EVENT DATE: 2005
